FAERS Safety Report 8015791-0 (Version None)
Quarter: 2011Q4

REPORT INFORMATION
  Report Type: 
  Country: None (occurrence: None)
  Receive Date: 20111230
  Receipt Date: 20111017
  Transmission Date: 20120403
  Serious: Yes (Hospitalization)
  Sender: FDA-Public Use
  Company Number: PT-ROCHE-1017049

PATIENT
  Age: 53 Year
  Sex: Female

DRUGS (4)
  1. TENOFOVIR [Suspect]
     Indication: HIV INFECTION
     Route: 048
     Dates: start: 20061201
  2. INVIRASE [Suspect]
     Indication: HIV INFECTION
  3. ZERIT [Concomitant]
  4. RITONAVIR [Concomitant]

REACTIONS (1)
  - CARDIOVASCULAR DISORDER [None]
